FAERS Safety Report 7770002-6 (Version None)
Quarter: 2011Q3

REPORT INFORMATION
  Report Type: 
  Country: None (occurrence: None)
  Receive Date: 20110922
  Receipt Date: 20110328
  Transmission Date: 20111222
  Serious: No
  Sender: FDA-Public Use
  Company Number: US-ASTRAZENECA-2011SE17788

PATIENT
  Age: 32 Year
  Sex: Female

DRUGS (3)
  1. SEROQUEL [Suspect]
     Route: 048
     Dates: end: 20100927
  2. VALIUM [Concomitant]
     Route: 048
     Dates: start: 20090301
  3. GEODON [Concomitant]
     Route: 048
     Dates: start: 20100927

REACTIONS (13)
  - ASTHMA [None]
  - DIABETES MELLITUS INADEQUATE CONTROL [None]
  - INTERVERTEBRAL DISC DEGENERATION [None]
  - OBESITY [None]
  - GASTROOESOPHAGEAL REFLUX DISEASE [None]
  - RHEUMATOID ARTHRITIS [None]
  - ABDOMINAL HERNIA [None]
  - TYPE 1 DIABETES MELLITUS [None]
  - ARTHRALGIA [None]
  - OSTEOARTHRITIS [None]
  - TYPE 2 DIABETES MELLITUS [None]
  - FATIGUE [None]
  - ABDOMINAL MASS [None]
